FAERS Safety Report 7652796-3 (Version None)
Quarter: 2011Q3

REPORT INFORMATION
  Report Type: 
  Country: None (occurrence: None)
  Receive Date: 20110728
  Receipt Date: 20110718
  Transmission Date: 20111222
  Serious: Yes (Hospitalization)
  Sender: FDA-Public Use
  Company Number: GER/GER/11/0019110

PATIENT
  Age: 64 Year
  Sex: Male
  Weight: 106 kg

DRUGS (4)
  1. BISOPROLOL FUMARATE [Concomitant]
  2. METFORMIN HCL [Concomitant]
  3. RAMIPRIL [Suspect]
     Indication: HYPERTENSION
     Dosage: 5 MG, 2 IN 1 D, ORAL
     Route: 048
  4. HYDROCHLOROTHIAZIDE [Concomitant]

REACTIONS (2)
  - SWELLING FACE [None]
  - LIP SWELLING [None]
